FAERS Safety Report 18317237 (Version 8)
Quarter: 2021Q1

REPORT INFORMATION
  Report Type: Spontaneous
  Country: CA (occurrence: CA)
  Receive Date: 20200928
  Receipt Date: 20210325
  Transmission Date: 20210419
  Serious: Yes (Other)
  Sender: FDA-Public Use
  Company Number: CA-CELLTRION INC.-2020CA027197

PATIENT

DRUGS (8)
  1. INFLECTRA [Suspect]
     Active Substance: INFLIXIMAB-DYYB
     Dosage: 600 MG REINDUCTION AT Q 0, 2, 6 WEEKS, THEN Q 6 WEEKS
     Route: 042
     Dates: start: 20210315
  2. PREDNISONE. [Concomitant]
     Active Substance: PREDNISONE
     Dosage: UNK
  3. INFLECTRA [Suspect]
     Active Substance: INFLIXIMAB-DYYB
     Dosage: 500 MG AT 0, 2, 6 WEEKS; MAINTENANCE DOSE NOT INDICATED (INDUCTION AT Q 0 AND 2 WEEKS)
     Route: 042
     Dates: start: 20200918, end: 20200918
  4. INFLECTRA [Suspect]
     Active Substance: INFLIXIMAB-DYYB
     Dosage: 600 MG AT WEEK 6, THEN EVERY 8 WEEKS
     Route: 042
     Dates: start: 20201015, end: 20201211
  5. INFLECTRA [Suspect]
     Active Substance: INFLIXIMAB-DYYB
     Dosage: 600 MG REINDUCTION AT Q 0, 2, 6 WEEKS, THEN Q 6 WEEKS
     Route: 042
     Dates: start: 20210224
  6. INFLECTRA [Suspect]
     Active Substance: INFLIXIMAB-DYYB
     Indication: COLITIS ULCERATIVE
     Dosage: 500 MG AT 0, 2, 6 WEEKS; MAINTENANCE DOSE NOT INDICATED (INDUCTION AT Q 0 AND 2 WEEKS )
     Route: 042
     Dates: start: 20200901, end: 20200918
  7. INFLECTRA [Suspect]
     Active Substance: INFLIXIMAB-DYYB
     Dosage: 600 MG AT WEEK 6, THEN EVERY 8 WEEKS
     Route: 042
     Dates: start: 20201211, end: 20201211
  8. INFLECTRA [Suspect]
     Active Substance: INFLIXIMAB-DYYB
     Dosage: 600 MG EVERY 6 WEEKS
     Route: 042
     Dates: start: 20210121, end: 20210121

REACTIONS (10)
  - Arthralgia [Not Recovered/Not Resolved]
  - Inappropriate schedule of product administration [Unknown]
  - Musculoskeletal stiffness [Not Recovered/Not Resolved]
  - Drug level below therapeutic [Unknown]
  - Off label use [Unknown]
  - Off label use [Unknown]
  - Condition aggravated [Unknown]
  - Pain [Recovering/Resolving]
  - Intentional product use issue [Unknown]
  - Weight increased [Unknown]

NARRATIVE: CASE EVENT DATE: 20200901
